FAERS Safety Report 7717107-3 (Version None)
Quarter: 2011Q3

REPORT INFORMATION
  Report Type: 
  Country: None (occurrence: None)
  Receive Date: 20110830
  Receipt Date: 20110817
  Transmission Date: 20111222
  Serious: Yes (Hospitalization, Other)
  Sender: FDA-Public Use
  Company Number: GB-RANBAXY-2008RR-18759

PATIENT
  Age: 34 Year
  Sex: Male

DRUGS (16)
  1. COLISTIN SULFATE [Suspect]
     Indication: PRODUCT USED FOR UNKNOWN INDICATION
  2. INTERFERON GAMMA NOS [Suspect]
     Indication: MYCOBACTERIUM ABSCESSUS INFECTION
  3. CLARITHROMYCIN [Suspect]
     Indication: PSEUDOMONAS INFECTION
  4. TOBI [Suspect]
     Indication: PSEUDOMONAS INFECTION
     Dosage: UNK
     Route: 055
  5. OMEPRAZOLE [Suspect]
     Indication: GASTROOESOPHAGEAL REFLUX DISEASE
     Dosage: UNK
     Route: 065
  6. MEROPENEM [Suspect]
     Indication: PRODUCT USED FOR UNKNOWN INDICATION
     Dosage: UNK
     Route: 042
  7. MINOCYCLINE HCL [Suspect]
     Indication: MYCOBACTERIUM ABSCESSUS INFECTION
     Dosage: UNK
     Route: 065
  8. TOBRAMYCIN [Suspect]
     Indication: PSEUDOMONAS INFECTION
     Dosage: UNK
     Route: 055
  9. AZITHROMYCIN [Suspect]
     Indication: PRODUCT USED FOR UNKNOWN INDICATION
     Dosage: UNK
     Route: 065
  10. COLISTIN SULFATE [Suspect]
     Indication: PSEUDOMONAS INFECTION
     Dosage: UNK
     Route: 042
  11. MINOCYCLINE HCL [Suspect]
     Indication: PSEUDOMONAS INFECTION
  12. CIPROFLOXACIN [Suspect]
     Indication: PRODUCT USED FOR UNKNOWN INDICATION
     Dosage: UNK
     Route: 048
  13. INTERFERON GAMMA NOS [Suspect]
     Indication: PSEUDOMONAS INFECTION
     Dosage: UNK
     Route: 058
  14. CLARITHROMYCIN [Suspect]
     Indication: MYCOBACTERIUM ABSCESSUS INFECTION
     Dosage: UNK
     Route: 065
  15. TOBRAMYCIN [Suspect]
     Indication: MYCOBACTERIUM ABSCESSUS INFECTION
  16. TOBI [Suspect]
     Indication: MYCOBACTERIUM ABSCESSUS INFECTION

REACTIONS (2)
  - PSEUDOMEMBRANOUS COLITIS [None]
  - CLOSTRIDIUM DIFFICILE COLITIS [None]
